FAERS Safety Report 13479893 (Version 1)
Quarter: 2017Q2

REPORT INFORMATION
  Report Type: Spontaneous
  Country: DE (occurrence: DE)
  Receive Date: 20170424
  Receipt Date: 20170424
  Transmission Date: 20170830
  Serious: Yes (Hospitalization, Other)
  Sender: FDA-Public Use
  Company Number: PHHY2017DE056495

PATIENT
  Sex: Female
  Weight: 45 kg

DRUGS (1)
  1. TASIGNA [Suspect]
     Active Substance: NILOTINIB
     Indication: CHRONIC MYELOID LEUKAEMIA
     Dosage: 300 MG, QD
     Route: 065
     Dates: start: 2012

REACTIONS (13)
  - Dyspnoea [Unknown]
  - Weight decreased [Unknown]
  - Alopecia [Unknown]
  - Bone pain [Unknown]
  - Maternal exposure during pregnancy [Unknown]
  - Decreased appetite [Unknown]
  - Skin disorder [Unknown]
  - Malignant neoplasm progression [Unknown]
  - Arthralgia [Unknown]
  - Pericardial effusion [Unknown]
  - Chronic myeloid leukaemia [Unknown]
  - Disturbance in attention [Unknown]
  - Normal newborn [Unknown]

NARRATIVE: CASE EVENT DATE: 201609
